FAERS Safety Report 7417655-X (Version None)
Quarter: 2011Q2

REPORT INFORMATION
  Report Type: 
  Country: None (occurrence: None)
  Receive Date: 20110415
  Receipt Date: 20110407
  Transmission Date: 20111010
  Serious: Yes (Hospitalization)
  Sender: FDA-Public Use
  Company Number: US-ALEXION-A201001298

PATIENT
  Sex: Male

DRUGS (2)
  1. SOLIRIS [Suspect]
     Indication: PAROXYSMAL NOCTURNAL HAEMOGLOBINURIA
     Dosage: 900 MG, Q2W
     Route: 042
     Dates: start: 20070101
  2. ATRIXA [Concomitant]
     Indication: THROMBOSIS
     Dosage: 10 MG, QD
     Route: 058

REACTIONS (2)
  - HAEMOGLOBIN DECREASED [None]
  - CELLULITIS STAPHYLOCOCCAL [None]
